FAERS Safety Report 21200391 (Version 1)
Quarter: 2022Q3

REPORT INFORMATION
  Report Type: Spontaneous
  Country: US (occurrence: US)
  Receive Date: 20220811
  Receipt Date: 20220811
  Transmission Date: 20221027
  Serious: Yes (Hospitalization)
  Sender: FDA-Public Use
  Company Number: US-PFIZER INC-PV202200039636

PATIENT
  Age: 86 Year
  Sex: Male

DRUGS (1)
  1. DAURISMO [Suspect]
     Active Substance: GLASDEGIB
     Indication: Acute myeloid leukaemia
     Dosage: 100 MG

REACTIONS (1)
  - Malaise [Unknown]
